FAERS Safety Report 5942021-3 (Version None)
Quarter: 2008Q4

REPORT INFORMATION
  Report Type: 
  Country: None (occurrence: None)
  Receive Date: 20081104
  Receipt Date: 20081104
  Transmission Date: 20090506
  Serious: No
  Sender: FDA-Public Use
  Company Number: None

PATIENT
  Age: 60 Year
  Sex: Female
  Weight: 83 kg

DRUGS (1)
  1. RANOLAZINE [Suspect]
     Dosage: 500 MG BID PO
     Route: 048
     Dates: start: 20080130, end: 20080228

REACTIONS (2)
  - NAUSEA [None]
  - VOMITING [None]
